FAERS Safety Report 25310084 (Version 2)
Quarter: 2025Q2

REPORT INFORMATION
  Report Type: Spontaneous
  Country: JP (occurrence: JP)
  Receive Date: 20250514
  Receipt Date: 20250521
  Transmission Date: 20250717
  Serious: Yes (Other)
  Sender: NOVARTIS
  Company Number: JP-002147023-NVSJ2025JP005034

PATIENT
  Age: 63 Year
  Sex: Male

DRUGS (1)
  1. PAZOPANIB [Suspect]
     Active Substance: PAZOPANIB
     Indication: Angiosarcoma
     Route: 065

REACTIONS (9)
  - Renal impairment [Recovering/Resolving]
  - Metastases to lymph nodes [Unknown]
  - Metastases to liver [Unknown]
  - Metastases to adrenals [Unknown]
  - Fatigue [Recovering/Resolving]
  - Diarrhoea [Recovering/Resolving]
  - Decreased appetite [Recovering/Resolving]
  - Hepatic function abnormal [Recovering/Resolving]
  - Drug ineffective [Unknown]
